FAERS Safety Report 13258761 (Version 1)
Quarter: 2017Q1

REPORT INFORMATION
  Report Type: Spontaneous
  Country: US (occurrence: US)
  Receive Date: 20170222
  Receipt Date: 20170222
  Transmission Date: 20170428
  Serious: No
  Sender: FDA-Public Use
  Company Number: US-TAKEDA-TPA2010A05123

PATIENT

DRUGS (11)
  1. ENALAPRIL [Concomitant]
     Active Substance: ENALAPRIL
     Indication: BLOOD PRESSURE MEASUREMENT
     Dosage: UNK
     Route: 048
  2. POTASSIUM CITRATE. [Concomitant]
     Active Substance: POTASSIUM CITRATE
     Indication: NEPHROLITHIASIS
     Dosage: UNK
     Route: 048
  3. ULORIC [Suspect]
     Active Substance: FEBUXOSTAT
     Dosage: 80 MG, QD
     Route: 048
     Dates: start: 20100901, end: 20100921
  4. PROBENECID. [Suspect]
     Active Substance: PROBENECID
     Indication: GOUT
     Dosage: 0.5 G, QD
     Route: 048
  5. COLCHICINE. [Suspect]
     Active Substance: COLCHICINE
     Indication: GOUT
     Dosage: UNK
     Route: 048
     Dates: start: 20100907
  6. ULORIC [Suspect]
     Active Substance: FEBUXOSTAT
     Indication: HYPERURICAEMIA
     Dosage: UNK, QD
     Route: 048
     Dates: start: 2009, end: 2009
  7. ULORIC [Suspect]
     Active Substance: FEBUXOSTAT
     Dosage: 80 MG, QD
     Route: 048
     Dates: start: 20100922, end: 20100928
  8. METOPROLOL. [Concomitant]
     Active Substance: METOPROLOL
     Indication: CARDIAC DISORDER
     Dosage: UNK
     Route: 048
  9. ULORIC [Suspect]
     Active Substance: FEBUXOSTAT
     Dosage: 80 MG, QD
     Route: 048
     Dates: start: 20170207
  10. PROBENECID. [Suspect]
     Active Substance: PROBENECID
     Dosage: UNK, BID
     Route: 048
  11. COLCHICINE. [Suspect]
     Active Substance: COLCHICINE
     Dosage: UNK, BID
     Route: 048

REACTIONS (9)
  - Aspartate aminotransferase increased [Unknown]
  - Nausea [Recovered/Resolved]
  - Diarrhoea [Recovering/Resolving]
  - Peripheral swelling [Not Recovered/Not Resolved]
  - Weight decreased [Unknown]
  - Gout [Not Recovered/Not Resolved]
  - Alanine aminotransferase increased [Unknown]
  - Condition aggravated [Not Recovered/Not Resolved]
  - Vomiting [Recovered/Resolved]

NARRATIVE: CASE EVENT DATE: 201009
